FAERS Safety Report 10417380 (Version 2)
Quarter: 2014Q3

REPORT INFORMATION
  Report Type: Spontaneous
  Country: US (occurrence: US)
  Receive Date: 20140829
  Receipt Date: 20140901
  Transmission Date: 20150326
  Serious: No
  Sender: FDA-Public Use
  Company Number: US-009507513-1408USA016647

PATIENT
  Sex: Male

DRUGS (2)
  1. PEGINTRON [Suspect]
     Active Substance: PEGINTERFERON ALFA-2B
     Dosage: 120 MCG/ 0.5 ML (STRENGTH: 120 (UNITS UNSPECIFIED)); REDIPEN
  2. PEGINTRON [Suspect]
     Active Substance: PEGINTERFERON ALFA-2B
     Dosage: 120 MCG/0.3 ML (STRENGTH: 120 (UNITS UNSPECIFIED)); REDIPEN

REACTIONS (4)
  - Product quality issue [Unknown]
  - No adverse event [Unknown]
  - Prescribed underdose [Unknown]
  - Underdose [Unknown]
